FAERS Safety Report 9172655 (Version 1)
Quarter: 2012Q4

REPORT INFORMATION
  Report Type: 
  Country: FR (occurrence: FR)
  Receive Date: 20120911
  Receipt Date: 20120911
  Transmission Date: 20130627
  Serious: Yes (Hospitalization)
  Sender: FDA-Public Use
  Company Number: FR-ROCHE-1115750

PATIENT
  Age: 48 Year
  Sex: Female

DRUGS (8)
  1. ROCEPHINE [Suspect]
     Indication: PRODUCT USED FOR UNKNOWN INDICATION
     Route: 042
     Dates: start: 20111226, end: 20120101
  2. ROCEPHINE [Suspect]
     Route: 042
     Dates: start: 201206
  3. VANCOMYCINE [Suspect]
     Indication: PRODUCT USED FOR UNKNOWN INDICATION
     Route: 042
     Dates: start: 20111229, end: 20120101
  4. VANCOMYCINE [Suspect]
     Route: 042
     Dates: start: 201206
  5. FLAGYL [Suspect]
     Indication: PRODUCT USED FOR UNKNOWN INDICATION
     Route: 042
     Dates: start: 20111226, end: 20120101
  6. FUMARATE FERREUX [Concomitant]
     Route: 048
  7. XANAX [Concomitant]
     Route: 048
  8. METOPROLOL FUMARATE [Concomitant]

REACTIONS (3)
  - Urticaria [Recovered/Resolved]
  - Pyrexia [Recovered/Resolved]
  - Skin test negative [Unknown]
